FAERS Safety Report 20872096 (Version 3)
Quarter: 2022Q4

REPORT INFORMATION
  Report Type: Spontaneous
  Country: JP (occurrence: JP)
  Receive Date: 20220525
  Receipt Date: 20221027
  Transmission Date: 20230113
  Serious: Yes (Life-Threatening, Hospitalization, Other)
  Sender: FDA-Public Use
  Company Number: JP-ELI_LILLY_AND_COMPANY-JP202205002948

PATIENT
  Age: 72 Year
  Sex: Female
  Weight: 49 kg

DRUGS (8)
  1. VERZENIO [Suspect]
     Active Substance: ABEMACICLIB
     Indication: Breast cancer recurrent
     Dosage: 300 MG, DAILY
     Route: 048
     Dates: start: 20220413, end: 20220503
  2. FASLODEX [Concomitant]
     Active Substance: FULVESTRANT
     Indication: Breast cancer recurrent
     Dosage: 500 MG, 2/M
     Route: 030
     Dates: start: 20220413, end: 20220427
  3. FENTANYL [Concomitant]
     Active Substance: FENTANYL
     Indication: Pain
     Dosage: 4 MG, UNKNOWN
     Route: 062
     Dates: start: 201501
  4. ASPIRIN [Concomitant]
     Active Substance: ASPIRIN
     Indication: Cerebral infarction
     Dosage: 100 MG, UNKNOWN
     Route: 048
     Dates: start: 20040602
  5. CYMBALTA [Concomitant]
     Active Substance: DULOXETINE HYDROCHLORIDE
     Indication: Depression
     Dosage: 40 MG, UNKNOWN
     Route: 048
     Dates: start: 20040705
  6. BIO-THREE [Concomitant]
     Active Substance: HERBALS
     Indication: Constipation
     Dosage: 1 DOSAGE FORM, TID
     Route: 048
  7. NITRAZEPAM [Concomitant]
     Active Substance: NITRAZEPAM
     Indication: Insomnia
     Dosage: 10 MG, UNKNOWN
     Route: 048
     Dates: start: 20040705
  8. ESTAZOLAM [Concomitant]
     Active Substance: ESTAZOLAM
     Indication: Insomnia
     Dosage: 2 MG, UNKNOWN
     Route: 048
     Dates: start: 20040705

REACTIONS (5)
  - Disseminated intravascular coagulation [Recovering/Resolving]
  - Pneumonia bacterial [Recovering/Resolving]
  - Cerebral infarction [Recovered/Resolved with Sequelae]
  - Febrile neutropenia [Recovering/Resolving]
  - Anaemia [Recovered/Resolved]

NARRATIVE: CASE EVENT DATE: 20220504
